FAERS Safety Report 25005634 (Version 1)
Quarter: 2025Q1

REPORT INFORMATION
  Report Type: Spontaneous
  Country: US (occurrence: US)
  Receive Date: 20250224
  Receipt Date: 20250224
  Transmission Date: 20250408
  Serious: Yes (Other)
  Sender: DR REDDYS
  Company Number: US-DRL-USA-USA/2025/02/002547

PATIENT
  Age: 25 Year
  Sex: Male

DRUGS (3)
  1. METOPROLOL SUCCINATE [Suspect]
     Active Substance: METOPROLOL SUCCINATE
     Indication: Dilated cardiomyopathy
  2. SPIRONOLACTONE [Suspect]
     Active Substance: SPIRONOLACTONE
     Indication: Dilated cardiomyopathy
  3. SACUBITRIL\VALSARTAN [Suspect]
     Active Substance: SACUBITRIL\VALSARTAN
     Indication: Dilated cardiomyopathy
     Dosage: 49-51 MG

REACTIONS (1)
  - Drug ineffective for unapproved indication [Unknown]
